FAERS Safety Report 19304784 (Version 1)
Quarter: 2021Q2

REPORT INFORMATION
  Report Type: Spontaneous
  Country: US (occurrence: US)
  Receive Date: 20210526
  Receipt Date: 20210526
  Transmission Date: 20210717
  Serious: Yes (Hospitalization)
  Sender: FDA-Public Use
  Company Number: US-FARMAPROD-202105-0744

PATIENT
  Sex: Female

DRUGS (2)
  1. ANTIBIOTIC [Concomitant]
     Active Substance: UNSPECIFIED INGREDIENT
     Route: 047
  2. OXERVATE [Suspect]
     Active Substance: CENEGERMIN-BKBJ
     Indication: NEUROTROPHIC KERATOPATHY
     Route: 047
     Dates: start: 20210416

REACTIONS (1)
  - Intracranial aneurysm [Unknown]
